FAERS Safety Report 11716808 (Version 2)
Quarter: 2015Q4

REPORT INFORMATION
  Report Type: Spontaneous
  Country: US (occurrence: US)
  Receive Date: 20151104
  Receipt Date: 20151120
  Transmission Date: 20160304
  Serious: No
  Sender: FDA-Public Use
  Company Number: US-ELI_LILLY_AND_COMPANY-US201105001223

PATIENT
  Age: 75 Year
  Sex: Female

DRUGS (4)
  1. ANTIHYPERTENSIVES [Concomitant]
     Active Substance: UNSPECIFIED INGREDIENT
     Indication: BLOOD PRESSURE MEASUREMENT
  2. NEXIUM [Concomitant]
     Active Substance: ESOMEPRAZOLE MAGNESIUM
     Indication: BLOOD PRESSURE ABNORMAL
  3. FORTEO [Suspect]
     Active Substance: TERIPARATIDE
     Dosage: 20 UG, QD
  4. FORTEO [Suspect]
     Active Substance: TERIPARATIDE
     Indication: OSTEOPOROSIS
     Dosage: 20 UG, QD
     Dates: start: 20110323, end: 20110327

REACTIONS (11)
  - Intentional product misuse [Unknown]
  - Gingival disorder [Unknown]
  - Onychoclasis [Unknown]
  - Chapped lips [Unknown]
  - Rash [Unknown]
  - Malaise [Recovering/Resolving]
  - Skin injury [Recovering/Resolving]
  - Erythema [Recovering/Resolving]
  - Adverse reaction [Unknown]
  - Photosensitivity reaction [Recovering/Resolving]
  - Drug dose omission [Unknown]

NARRATIVE: CASE EVENT DATE: 20121119
